FAERS Safety Report 23448306 (Version 1)
Quarter: 2024Q1

REPORT INFORMATION
  Report Type: Spontaneous
  Country: HU (occurrence: HU)
  Receive Date: 20240127
  Receipt Date: 20240127
  Transmission Date: 20240410
  Serious: Yes (Death, Hospitalization, Other)
  Sender: FDA-Public Use
  Company Number: HU-CELLTRION INC.-2022HU016615

PATIENT

DRUGS (30)
  1. RITUXIMAB [Suspect]
     Active Substance: RITUXIMAB
     Indication: Diffuse large B-cell lymphoma stage IV
     Dosage: 375 MG/M2, Q2WEEKS/REGIMEN 1 DOSE DELAYED/375 MILLIGRAM/SQ. METER, 1Q2W,
     Route: 042
     Dates: start: 20220711, end: 20220711
  2. RITUXIMAB [Suspect]
     Active Substance: RITUXIMAB
     Dosage: 375 MG/M2, Q2WEEKS/REGIMEN 1 DOSE DELAYED/ 1Q2W
     Route: 042
     Dates: start: 20220808, end: 20220822
  3. OXALIPLATIN [Suspect]
     Active Substance: OXALIPLATIN
     Indication: Diffuse large B-cell lymphoma stage IV
     Dosage: 1000 MG/M2 (ADDITIONAL INFORMATION ON DRUG: REGIMEN 1 DOSE DELAYED)
     Route: 042
     Dates: start: 20220712, end: 20220712
  4. OXALIPLATIN [Suspect]
     Active Substance: OXALIPLATIN
     Dosage: 100 MG/M2
     Route: 042
     Dates: start: 20220809, end: 20220823
  5. OXALIPLATIN [Suspect]
     Active Substance: OXALIPLATIN
     Dosage: 100 MG/M2, 1Q2W
     Dates: start: 20220712, end: 20220712
  6. OXALIPLATIN [Suspect]
     Active Substance: OXALIPLATIN
     Dosage: 100 MG/M2, 1Q2W
     Dates: start: 20220809
  7. GEMCITABINE [Suspect]
     Active Substance: GEMCITABINE
     Indication: Diffuse large B-cell lymphoma stage IV
     Dosage: 1000 MG/M2/REGIMEN 1 DOSE DELAYED/1Q2W
     Route: 042
     Dates: start: 20220712, end: 20220712
  8. GEMCITABINE [Suspect]
     Active Substance: GEMCITABINE
     Dosage: 750 MG/M2/REGIMEN 1 DOSE DELAYED/1Q2W
     Route: 042
     Dates: start: 20220809, end: 20220823
  9. FEBUXOSTAT [Concomitant]
     Active Substance: FEBUXOSTAT
     Dosage: UNK
     Dates: start: 20220711
  10. BISOPROLOL [Concomitant]
     Active Substance: BISOPROLOL\BISOPROLOL FUMARATE
     Dosage: UNK
     Dates: start: 202202
  11. PANTOPRAZOLE [Concomitant]
     Active Substance: PANTOPRAZOLE
     Dosage: UNK
     Dates: start: 20220622
  12. PANTOPRAZOLE [Concomitant]
     Active Substance: PANTOPRAZOLE
     Dosage: UNK
  13. CHLOROPYRAMINE HYDROCHLORIDE [Concomitant]
     Active Substance: CHLOROPYRAMINE HYDROCHLORIDE
     Dosage: UNK
     Dates: start: 20220711, end: 20220711
  14. FILGRASTIM [Concomitant]
     Active Substance: FILGRASTIM
     Dosage: UNK
     Dates: start: 20220816, end: 20220904
  15. FILGRASTIM [Concomitant]
     Active Substance: FILGRASTIM
     Dosage: 48 M [IU]
  16. CHLOROPYRAMINE [Concomitant]
     Active Substance: CHLOROPYRAMINE
     Dosage: UNK
  17. ACETAMINOPHEN [Concomitant]
     Active Substance: ACETAMINOPHEN
     Dosage: UNK
     Dates: start: 20220711, end: 20220711
  18. ONDANSETRON HYDROCHLORIDE [Concomitant]
     Active Substance: ONDANSETRON HYDROCHLORIDE
     Dosage: UNK
     Dates: start: 20220712, end: 20220712
  19. MEROPENEM [Concomitant]
     Active Substance: MEROPENEM
     Dosage: 1 G
  20. FUROSEMIDE [Concomitant]
     Active Substance: FUROSEMIDE
  21. RINGERS SOLUTION [Concomitant]
     Active Substance: CALCIUM CHLORIDE\POTASSIUM CHLORIDE\SODIUM CHLORIDE
     Dosage: UNK
     Dates: start: 20220711, end: 20220728
  22. PAXIRASOL [Concomitant]
  23. SODIUM CHLORIDE [Concomitant]
     Active Substance: SODIUM CHLORIDE
     Dosage: UNK
     Dates: start: 20220711, end: 20220728
  24. SOLU-MEDROL [Concomitant]
     Active Substance: METHYLPREDNISOLONE SODIUM SUCCINATE
     Indication: Premedication
     Dosage: UNK
     Dates: start: 20220711, end: 20220711
  25. FUROSEMIDE [Concomitant]
     Active Substance: FUROSEMIDE
     Dosage: UNK
     Dates: start: 20220711, end: 20220728
  26. MEDROL [Concomitant]
     Active Substance: METHYLPREDNISOLONE
     Dosage: UNK
     Dates: start: 20220622, end: 20220710
  27. MEDROL [Concomitant]
     Active Substance: METHYLPREDNISOLONE
     Dosage: UNK
     Dates: start: 20220622, end: 20220714
  28. POTASSIUM CHLORIDE [Concomitant]
     Active Substance: POTASSIUM CHLORIDE
     Dosage: UNK
     Dates: start: 20220713, end: 20220728
  29. VANCOMYCIN [Concomitant]
     Active Substance: VANCOMYCIN
     Dosage: UNK
     Dates: start: 20220716, end: 20220728
  30. SODIUM BICARBONATE [Concomitant]
     Active Substance: SODIUM BICARBONATE
     Dosage: 8.4 PERCENT
     Dates: start: 20220711, end: 20220713

REACTIONS (2)
  - Disease progression [Fatal]
  - Febrile neutropenia [Recovered/Resolved]

NARRATIVE: CASE EVENT DATE: 20220713
